FAERS Safety Report 4321150-4 (Version None)
Quarter: 2004Q1

REPORT INFORMATION
  Report Type: 
  Country: None (occurrence: None)
  Receive Date: 20040315
  Receipt Date: 20031022
  Transmission Date: 20041129
  Serious: Yes (Hospitalization)
  Sender: FDA-Public Use
  Company Number: PHEH2003US08936

PATIENT
  Age: 36 Year
  Sex: Female

DRUGS (2)
  1. TRILEPTAL [Suspect]
     Indication: EPILEPSY
     Dosage: 300 MG, QD, ORAL; 600 MG, QD
     Route: 048
  2. TRILEPTAL [Suspect]
     Dosage: 2100 MG/DAY, ORAL
     Route: 048
     Dates: start: 20030801

REACTIONS (6)
  - AMNESIA [None]
  - DIPLOPIA [None]
  - DRUG INEFFECTIVE [None]
  - GRAND MAL CONVULSION [None]
  - HYPOAESTHESIA ORAL [None]
  - TREMOR [None]
